FAERS Safety Report 9948419 (Version 2)
Quarter: 2015Q4

REPORT INFORMATION
  Report Type: Report from Study
  Country: US (occurrence: US)
  Receive Date: 20140304
  Receipt Date: 20151120
  Transmission Date: 20160305
  Serious: Yes (Other)
  Sender: FDA-Public Use
  Company Number: US-ROCHE-1345248

PATIENT
  Sex: Female

DRUGS (8)
  1. LUCENTIS [Suspect]
     Active Substance: RANIBIZUMAB
     Indication: DIABETIC RETINOPATHY
     Dosage: OD
     Route: 050
     Dates: start: 20110818
  2. AVASTIN [Suspect]
     Active Substance: BEVACIZUMAB
     Indication: DIABETIC RETINAL OEDEMA
     Route: 050
  3. AMLODIPINE BESYLATE. [Concomitant]
     Active Substance: AMLODIPINE BESYLATE
     Route: 065
     Dates: start: 20121206
  4. LUCENTIS [Suspect]
     Active Substance: RANIBIZUMAB
     Indication: DIABETIC RETINAL OEDEMA
     Dosage: OD
     Route: 050
     Dates: start: 20110721
  5. TROPICAMIDE. [Concomitant]
     Active Substance: TROPICAMIDE
     Route: 065
  6. LUCENTIS [Suspect]
     Active Substance: RANIBIZUMAB
     Route: 050
  7. LIPITOR [Concomitant]
     Active Substance: ATORVASTATIN CALCIUM
     Route: 065
     Dates: start: 20121206
  8. PHENYLEPHRINE [Concomitant]
     Active Substance: PHENYLEPHRINE\PHENYLEPHRINE HYDROCHLORIDE
     Route: 065

REACTIONS (13)
  - Meibomian gland dysfunction [Unknown]
  - Asthenia [Unknown]
  - Retinal haemorrhage [Unknown]
  - Urinary tract infection [Unknown]
  - Off label use [Unknown]
  - Eye pruritus [Unknown]
  - Dyspnoea [Unknown]
  - Cystoid macular oedema [Unknown]
  - Vitreous floaters [Unknown]
  - Blood glucose increased [Unknown]
  - Pupillary reflex impaired [Unknown]
  - Vitreous detachment [Unknown]
  - Prescribed overdose [Unknown]
